FAERS Safety Report 20466756 (Version 1)
Quarter: 2022Q1

REPORT INFORMATION
  Report Type: Spontaneous
  Country: US (occurrence: US)
  Receive Date: 20220214
  Receipt Date: 20220214
  Transmission Date: 20220423
  Serious: Yes (Hospitalization)
  Sender: FDA-Public Use
  Company Number: US-AUROBINDO-AUR-APL-2022-004116

PATIENT
  Age: 56 Year
  Sex: Male

DRUGS (1)
  1. CLINDAMYCIN [Suspect]
     Active Substance: CLINDAMYCIN
     Indication: Infection
     Dosage: UNK
     Route: 065

REACTIONS (1)
  - Treatment failure [Unknown]
